FAERS Safety Report 5075653-8 (Version None)
Quarter: 2006Q3

REPORT INFORMATION
  Report Type: 
  Country: None (occurrence: None)
  Receive Date: 20060807
  Receipt Date: 20060807
  Transmission Date: 20061208
  Serious: No
  Sender: FDA-Public Use
  Company Number: None

PATIENT
  Age: 75 Year
  Sex: Male
  Weight: 164 kg

DRUGS (1)
  1. BROMOCRIPTINE MESYLATE [Suspect]
     Indication: PITUITARY TUMOUR BENIGN
     Dosage: 3 CAPS BKFST  2LUNCH 3DINNER MOUTH
     Route: 048

REACTIONS (3)
  - BLOOD PROLACTIN INCREASED [None]
  - PHARMACEUTICAL PRODUCT COUNTERFEIT [None]
  - POOR QUALITY DRUG ADMINISTERED [None]
